FAERS Safety Report 7874735-2 (Version None)
Quarter: 2011Q4

REPORT INFORMATION
  Report Type: 
  Country: None (occurrence: None)
  Receive Date: 20111031
  Receipt Date: 20111025
  Transmission Date: 20120403
  Serious: Yes (Other)
  Sender: FDA-Public Use
  Company Number: US-PFIZER INC-2011261859

PATIENT
  Sex: Female

DRUGS (2)
  1. RELPAX [Suspect]
     Indication: MIGRAINE
     Dosage: UNK
  2. TRAMADOL HYDROCHLORIDE [Suspect]
     Indication: HEADACHE
     Dosage: UNK

REACTIONS (2)
  - DEPRESSION [None]
  - ANXIETY [None]
